FAERS Safety Report 10137213 (Version 1)
Quarter: 2014Q2

REPORT INFORMATION
  Report Type: Spontaneous
  Country: US (occurrence: None)
  Receive Date: 20140428
  Receipt Date: 20140428
  Transmission Date: 20141212
  Serious: Yes (Disabling)
  Sender: FDA-Public Use
  Company Number: None

PATIENT
  Age: 64 Year
  Sex: Female
  Weight: 58.97 kg

DRUGS (3)
  1. DEXAMETHASONE [Suspect]
     Indication: NECK PAIN
     Dosage: AS NEEDED ?INJECTED INTO SPINAL AREA
  2. DEXAMETHASONE [Suspect]
     Indication: MUSCULOSKELETAL PAIN
     Dosage: AS NEEDED ?INJECTED INTO SPINAL AREA
  3. DEXAMETHASONE [Suspect]
     Dosage: AS NEEDED ?INJECTED INTO SPINAL AREA

REACTIONS (3)
  - Hypotonia [None]
  - Posture abnormal [None]
  - Neurological symptom [None]
